FAERS Safety Report 4896624-8 (Version None)
Quarter: 2005Q4

REPORT INFORMATION
  Report Type: 
  Country: None (occurrence: None)
  Receive Date: 20051223
  Receipt Date: 20050901
  Transmission Date: 20060501
  Serious: No
  Sender: FDA-Public Use
  Company Number: 05P-163-0310062-00

PATIENT
  Age: 78 Year
  Sex: Female
  Weight: 58.9676 kg

DRUGS (14)
  1. HUMIRA [Suspect]
     Indication: RHEUMATOID ARTHRITIS
     Dosage: 40 MG, 1 IN 1 D, SUBCUTANEOUS
     Route: 058
     Dates: start: 20040101, end: 20050525
  2. LOSARTAN POTASSIUM [Concomitant]
  3. DIGOXIN [Concomitant]
  4. TOPROL [Concomitant]
  5. ACTOS [Concomitant]
  6. MULTIVITAMIN [Concomitant]
  7. CALCIUM GLUCONATE [Concomitant]
  8. RALOXIFENE HYDROCHLORIDE [Concomitant]
  9. METHOTREXATE [Concomitant]
  10. GLUCOPHAGE [Concomitant]
  11. FOLIC ACID [Concomitant]
  12. COUMADIN [Concomitant]
  13. LATANOPROST [Concomitant]
  14. TIMOLOL MALEATE [Concomitant]

REACTIONS (3)
  - DIZZINESS [None]
  - NAUSEA [None]
  - SINUSITIS [None]
